FAERS Safety Report 15008765 (Version 1)
Quarter: 2018Q2

REPORT INFORMATION
  Report Type: Spontaneous
  Country: US (occurrence: US)
  Receive Date: 20180521
  Receipt Date: 20180521
  Transmission Date: 20180711
  Serious: No
  Sender: FDA-Public Use
  Company Number: None

PATIENT
  Age: 69 Year
  Sex: Male

DRUGS (13)
  1. FOLIC ACID. [Concomitant]
     Active Substance: FOLIC ACID
  2. GENTAMICIN. [Concomitant]
     Active Substance: GENTAMICIN
  3. METOPROLOL TARTRATE. [Concomitant]
     Active Substance: METOPROLOL TARTRATE
  4. THIAMINE. [Concomitant]
     Active Substance: THIAMINE
  5. CEFTRIAXONE. [Suspect]
     Active Substance: CEFTRIAXONE
     Indication: ENDOCARDITIS
     Route: 042
     Dates: start: 20180418
  6. ASPIRIN. [Concomitant]
     Active Substance: ASPIRIN
  7. MAGNESIUM OXIDE. [Concomitant]
     Active Substance: MAGNESIUM OXIDE
  8. MILRINONE [Concomitant]
     Active Substance: MILRINONE
  9. ALLOPURINOL. [Concomitant]
     Active Substance: ALLOPURINOL
  10. FUROSEMIDE. [Concomitant]
     Active Substance: FUROSEMIDE
  11. AMLODIPINE [Concomitant]
     Active Substance: AMLODIPINE BESYLATE
  12. HEPARIN [Concomitant]
     Active Substance: HEPARIN SODIUM
  13. POTASSIUM [Concomitant]
     Active Substance: POTASSIUM

REACTIONS (6)
  - Hypoaesthesia [None]
  - Paraesthesia [None]
  - Liver function test increased [None]
  - Drug-induced liver injury [None]
  - Musculoskeletal pain [None]
  - Infusion related reaction [None]

NARRATIVE: CASE EVENT DATE: 20180418
